FAERS Safety Report 5338384-2 (Version None)
Quarter: 2007Q2

REPORT INFORMATION
  Report Type: 
  Country: None (occurrence: None)
  Receive Date: 20070405
  Receipt Date: 20061114
  Transmission Date: 20071010
  Serious: No
  Sender: FDA-Public Use
  Company Number: US200611002718

PATIENT
  Sex: Female

DRUGS (3)
  1. CYMBALTA [Suspect]
     Indication: DEPRESSION
     Dosage: 30 MG, DAILY (1/D)
     Dates: start: 20050801
  2. RISPERDAL /SWE/ (RISPERIDONE) [Concomitant]
  3. ADDERALL (AMFETAMINE ASPARTATE, AMFETAMINE SULFAGE, DEXAMFETAMINE SACC [Concomitant]

REACTIONS (2)
  - ORAL FUNGAL INFECTION [None]
  - SALIVA ALTERED [None]
